FAERS Safety Report 14880154 (Version 1)
Quarter: 2018Q2

REPORT INFORMATION
  Report Type: Spontaneous
  Country: US (occurrence: US)
  Receive Date: 20180511
  Receipt Date: 20180511
  Transmission Date: 20180711
  Serious: Yes (Hospitalization)
  Sender: FDA-Public Use
  Company Number: US-B.I. PHARMACEUTICALS,INC./RIDGEFIELD-2018-BI-024633

PATIENT
  Sex: Male

DRUGS (3)
  1. STIOLTO RESPIMAT [Suspect]
     Active Substance: OLODATEROL HYDROCHLORIDE\TIOTROPIUM BROMIDE MONOHYDRATE
     Indication: ASBESTOSIS
     Dosage: FORMULATION:INHALATION SPRAY;ADMINISTRATION CORRECT?YES;ACTION(S)TAKEN WITH PRODUCT:DOSE NOT CHANGED
     Route: 055
     Dates: start: 201706
  2. PREDNISONE. [Suspect]
     Active Substance: PREDNISONE
     Indication: PRODUCT USED FOR UNKNOWN INDICATION
     Route: 065
  3. ALBUTEROL. [Concomitant]
     Active Substance: ALBUTEROL
     Indication: WHEEZING
     Dosage: PRN;  FORMULATION: INHALATION SOLUTION;
     Route: 055

REACTIONS (7)
  - Dyspnoea exertional [Not Recovered/Not Resolved]
  - Heart rate increased [Unknown]
  - Cardiac failure congestive [Not Recovered/Not Resolved]
  - Blood glucose increased [Recovered/Resolved]
  - Off label use [Unknown]
  - Cardiac failure congestive [Unknown]
  - Oxygen consumption increased [Not Recovered/Not Resolved]

NARRATIVE: CASE EVENT DATE: 201709
